FAERS Safety Report 5287151-7 (Version None)
Quarter: 2007Q2

REPORT INFORMATION
  Report Type: 
  Country: None (occurrence: None)
  Receive Date: 20070404
  Receipt Date: 20070326
  Transmission Date: 20071010
  Serious: Yes (Other)
  Sender: FDA-Public Use
  Company Number: AR-PFIZER INC-2007015228

PATIENT
  Sex: Male
  Weight: 75 kg

DRUGS (7)
  1. SUTENT [Suspect]
     Indication: RENAL CANCER METASTATIC
     Dosage: DAILY DOSE:50MG-FREQ:4 WEEKS ON, 2 OFF
     Route: 048
  2. TERLOC [Concomitant]
     Route: 048
  3. LIPITOR [Concomitant]
     Route: 048
  4. ALPRAZOLAM [Concomitant]
     Route: 048
  5. CARDIOASPIRINA [Concomitant]
     Route: 048
  6. RABEPRAZOLE SODIUM [Concomitant]
     Route: 048
  7. IRBESARTAN [Concomitant]
     Route: 048

REACTIONS (6)
  - ANAL HAEMORRHAGE [None]
  - CHOKING [None]
  - EPISTAXIS [None]
  - HAEMATEMESIS [None]
  - OESOPHAGEAL PAIN [None]
  - VOMITING [None]
